FAERS Safety Report 4705628-7 (Version None)
Quarter: 2005Q3

REPORT INFORMATION
  Report Type: 
  Country: None (occurrence: None)
  Receive Date: 20050701
  Receipt Date: 20050518
  Transmission Date: 20060218
  Serious: Yes (Disabling)
  Sender: FDA-Public Use
  Company Number: JP-BOEHRINGER INGELHEIM PHARMACEUTICALS, INC.-2005-BP-08365NB

PATIENT
  Sex: Male
  Weight: 45 kg

DRUGS (9)
  1. SPIRIVA [Suspect]
     Indication: BRONCHITIS CHRONIC
     Route: 055
     Dates: start: 20050404, end: 20050502
  2. RULID [Concomitant]
     Indication: BRONCHITIS CHRONIC
     Route: 048
     Dates: start: 20040421
  3. MOBIC [Concomitant]
     Indication: BACK PAIN
     Route: 048
     Dates: start: 20030124
  4. EPINAZION (EPINASTINE HYDROCHLORIDE) [Concomitant]
     Indication: ASTHMA
     Route: 048
     Dates: start: 20020301
  5. UNICON [Concomitant]
     Indication: ASTHMA
     Route: 048
     Dates: start: 19961004
  6. SEREVENT [Concomitant]
     Indication: ASTHMA
     Route: 055
     Dates: start: 20030124
  7. ATROVENT [Concomitant]
     Indication: ASTHMA
     Route: 055
     Dates: start: 19990402
  8. ZEPOLAS [Concomitant]
     Indication: BACK PAIN
     Route: 062
     Dates: start: 20040616
  9. VOLTAREN [Concomitant]
     Indication: BACK PAIN
     Route: 054
     Dates: start: 19981012

REACTIONS (1)
  - ANGLE CLOSURE GLAUCOMA [None]
